FAERS Safety Report 21607145 (Version 2)
Quarter: 2023Q1

REPORT INFORMATION
  Report Type: Spontaneous
  Country: CO (occurrence: CO)
  Receive Date: 20221117
  Receipt Date: 20230320
  Transmission Date: 20230417
  Serious: Yes (Hospitalization, Other)
  Sender: FDA-Public Use
  Company Number: CO-SA-SAC20221115001841

PATIENT
  Age: 27 Year
  Sex: Male

DRUGS (3)
  1. LEMTRADA [Suspect]
     Active Substance: ALEMTUZUMAB
     Indication: Multiple sclerosis
     Dosage: 12 MG
     Route: 042
     Dates: start: 20210625, end: 20210627
  2. LEMTRADA [Suspect]
     Active Substance: ALEMTUZUMAB
     Dosage: UNK
     Route: 042
  3. LEMTRADA [Suspect]
     Active Substance: ALEMTUZUMAB
     Dosage: UNK
     Route: 042

REACTIONS (5)
  - Immobile [Recovered/Resolved]
  - Constipation [Unknown]
  - Multiple sclerosis relapse [Unknown]
  - Headache [Recovering/Resolving]
  - Asthenia [Recovered/Resolved]

NARRATIVE: CASE EVENT DATE: 20221101
